FAERS Safety Report 17915771 (Version 3)
Quarter: 2020Q4

REPORT INFORMATION
  Report Type: Spontaneous
  Country: DE (occurrence: DE)
  Receive Date: 20200619
  Receipt Date: 20201006
  Transmission Date: 20210113
  Serious: Yes (Other)
  Sender: FDA-Public Use
  Company Number: DE-ROCHE-2626779

PATIENT
  Age: 43 Year
  Sex: Female

DRUGS (5)
  1. GABAPENTIN. [Concomitant]
     Active Substance: GABAPENTIN
     Dates: start: 20190507
  2. METHYLPREDNISOLON [Concomitant]
     Active Substance: METHYLPREDNISOLONE
     Dosage: GRADUALLY REDUCED
     Route: 042
     Dates: start: 20190507
  3. OCREVUS [Suspect]
     Active Substance: OCRELIZUMAB
     Indication: MULTIPLE SCLEROSIS
     Route: 065
  4. TIZANIDINE. [Concomitant]
     Active Substance: TIZANIDINE
     Dates: start: 20190507
  5. DEKRISTOL [Concomitant]
     Active Substance: CHOLECALCIFEROL
     Dates: start: 20190507

REACTIONS (10)
  - Feeling of body temperature change [Unknown]
  - Breast cancer [Unknown]
  - Pain [Unknown]
  - Neuralgia [Unknown]
  - Limb discomfort [Unknown]
  - Vertigo [Unknown]
  - Feeling abnormal [Unknown]
  - Muscle spasticity [Unknown]
  - Radiculopathy [Unknown]
  - Paraesthesia [Unknown]

NARRATIVE: CASE EVENT DATE: 202004
